FAERS Safety Report 8237903-6 (Version None)
Quarter: 2012Q1

REPORT INFORMATION
  Report Type: 
  Country: None (occurrence: None)
  Receive Date: 20120327
  Receipt Date: 20120313
  Transmission Date: 20120608
  Serious: Yes (Hospitalization)
  Sender: FDA-Public Use
  Company Number: US-UCBSA-053336

PATIENT
  Age: 83 Year
  Sex: Female
  Weight: 49.9 kg

DRUGS (7)
  1. FERROUS SULFATE TAB [Concomitant]
     Indication: ANAEMIA
     Route: 048
     Dates: start: 20111210
  2. FOLIC ACID [Concomitant]
     Indication: SUPPLEMENTATION THERAPY
     Route: 048
     Dates: start: 20080101
  3. METHOTREXATE [Concomitant]
     Indication: RHEUMATOID ARTHRITIS
     Route: 048
     Dates: start: 20110210
  4. FLUOXETINE [Concomitant]
     Indication: DEPRESSION
     Route: 048
     Dates: start: 20100401
  5. LISINOPRIL [Concomitant]
     Indication: HYPERTENSION
     Route: 048
     Dates: start: 20090101
  6. CERTOLIZUMAB PEGOL [Suspect]
     Indication: RHEUMATOID ARTHRITIS
     Dosage: DOSE : 200MG ; NUMBER OF DOSES RECEIVED : 18
     Route: 058
     Dates: start: 20110628, end: 20120307
  7. AMITRIPTYLINE HCL [Concomitant]
     Indication: ANXIETY
     Dosage: EVERY NIGHT AT BEDTIME
     Route: 048
     Dates: start: 20110301

REACTIONS (1)
  - PNEUMONIA [None]
